FAERS Safety Report 24553679 (Version 1)
Quarter: 2024Q4

REPORT INFORMATION
  Report Type: Report from Study
  Country: US (occurrence: US)
  Receive Date: 20241028
  Receipt Date: 20241028
  Transmission Date: 20250114
  Serious: No
  Sender: ROCHE
  Company Number: US-ROCHE-3565869

PATIENT
  Age: 16 Year
  Sex: Male
  Weight: 61.18 kg

DRUGS (1)
  1. NUTROPIN AQ [Suspect]
     Active Substance: SOMATROPIN
     Indication: Hypopituitarism
     Dosage: STRENGTH : 20MG/2ML,
     Route: 058

REACTIONS (4)
  - Treatment noncompliance [Unknown]
  - No adverse event [Unknown]
  - Intentional product misuse [Unknown]
  - Product dose omission issue [Unknown]
